FAERS Safety Report 15590893 (Version 1)
Quarter: 2018Q4

REPORT INFORMATION
  Report Type: Spontaneous
  Country: US (occurrence: US)
  Receive Date: 20181106
  Receipt Date: 20181106
  Transmission Date: 20190205
  Serious: No
  Sender: FDA-Public Use
  Company Number: US-PFIZER INC-2018369008

PATIENT
  Age: 40 Year
  Sex: Male

DRUGS (1)
  1. SOMAVERT [Suspect]
     Active Substance: PEGVISOMANT
     Indication: ACROMEGALY
     Dosage: 10 MG, UNK (INJECT 10 MG UNDER THE SKIN THREE TIMES A WEEK)

REACTIONS (4)
  - Nausea [Unknown]
  - Product use issue [Unknown]
  - Flatulence [Unknown]
  - Diarrhoea [Unknown]
